FAERS Safety Report 10946680 (Version 2)
Quarter: 2015Q2

REPORT INFORMATION
  Report Type: Report from Study
  Country: CA (occurrence: CA)
  Receive Date: 20150323
  Receipt Date: 20150410
  Transmission Date: 20150821
  Serious: Yes (Disabling, Other)
  Sender: FDA-Public Use
  Company Number: CA-BAYER-2013-077136

PATIENT
  Age: 40 Year
  Sex: Female
  Weight: 18.14 kg

DRUGS (10)
  1. BETASERON [Suspect]
     Active Substance: INTERFERON BETA-1B
     Indication: MULTIPLE SCLEROSIS
     Dosage: 0.25 MG, OW
  2. BETASERON [Suspect]
     Active Substance: INTERFERON BETA-1B
     Indication: MULTIPLE SCLEROSIS
     Dosage: 0.3 MG, TIW
     Dates: start: 20060101
  3. VITAMIN C [Concomitant]
     Active Substance: ASCORBIC ACID
     Dosage: 1000 MG
  4. VITAMIN B12 [Concomitant]
     Active Substance: CYANOCOBALAMIN
     Dosage: 1000 MCG
  5. BETASERON [Suspect]
     Active Substance: INTERFERON BETA-1B
     Indication: MULTIPLE SCLEROSIS
     Dosage: 0.250 MG, OW
  6. GRAVOL [Concomitant]
     Active Substance: DIMENHYDRINATE
     Dosage: AS NEEDED
  7. BETASERON [Suspect]
     Active Substance: INTERFERON BETA-1B
     Indication: MULTIPLE SCLEROSIS
     Dosage: 0.250 MG, OW
  8. BETASERON [Suspect]
     Active Substance: INTERFERON BETA-1B
     Indication: MULTIPLE SCLEROSIS
     Dosage: 0.3 MG
  9. VITAMIN D [Concomitant]
     Active Substance: CHOLECALCIFEROL
  10. VITAMIN D3 [Concomitant]
     Active Substance: CHOLECALCIFEROL
     Dosage: 2000 IU

REACTIONS (31)
  - Intentional product misuse [None]
  - Muscle twitching [None]
  - Pain in extremity [Not Recovered/Not Resolved]
  - Gait disturbance [Recovered/Resolved]
  - Gait disturbance [Recovered/Resolved]
  - Arthralgia [Recovered/Resolved]
  - Pain in extremity [Recovered/Resolved]
  - Gait disturbance [Recovered/Resolved]
  - Balance disorder [Recovered/Resolved]
  - Arthralgia [Recovered/Resolved]
  - Back pain [Unknown]
  - Limb discomfort [None]
  - Influenza like illness [None]
  - Chills [None]
  - Pyrexia [None]
  - Paraesthesia [Not Recovered/Not Resolved]
  - Back pain [Recovered/Resolved]
  - Injection site pain [Not Recovered/Not Resolved]
  - Eye pain [Unknown]
  - Feeling cold [Unknown]
  - Bone pain [None]
  - Pain in extremity [None]
  - Hypoaesthesia [Not Recovered/Not Resolved]
  - Pain in extremity [Recovered/Resolved]
  - Bone pain [Unknown]
  - Restless legs syndrome [None]
  - Motor dysfunction [Not Recovered/Not Resolved]
  - Eye swelling [Unknown]
  - Malaise [Unknown]
  - Off label use [Unknown]
  - Arthralgia [None]

NARRATIVE: CASE EVENT DATE: 201306
